FAERS Safety Report 18398342 (Version 2)
Quarter: 2020Q4

REPORT INFORMATION
  Report Type: Report from Study
  Country: CA (occurrence: CA)
  Receive Date: 20201019
  Receipt Date: 20201113
  Transmission Date: 20210114
  Serious: Yes (Life-Threatening, Hospitalization, Other)
  Sender: FDA-Public Use
  Company Number: CA-ASTELLAS-2019US016574

PATIENT
  Age: 82 Year
  Sex: Female

DRUGS (20)
  1. ASG-22CE [Suspect]
     Active Substance: ENFORTUMAB VEDOTIN
     Dosage: 109 MG, CYCLIC (DAY 1,8 AND 15 OF EVERY CYCLE) (3 CONSECUTIVE WEEKS + 1 WEEK OFF)
     Route: 042
     Dates: start: 20190502
  2. PERINDOPRIL/INDAPAMIDE [Concomitant]
     Active Substance: INDAPAMIDE\PERINDOPRIL
     Indication: HYPERTENSION
     Dosage: 4-1.25MG, ONCE DAILY
     Route: 048
     Dates: start: 2014
  3. SPIRIVA [Concomitant]
     Active Substance: TIOTROPIUM BROMIDE MONOHYDRATE
     Indication: CHRONIC OBSTRUCTIVE PULMONARY DISEASE
     Route: 050
     Dates: start: 2009
  4. MEPILEX AG [Concomitant]
     Active Substance: ACTIVATED CHARCOAL\SILVER SULFATE
     Indication: SKIN INFECTION
     Dosage: FOAM DRESSED WEEKLY
     Route: 061
     Dates: start: 20190314, end: 20190430
  5. VENTOLIN [Concomitant]
     Active Substance: ALBUTEROL SULFATE
     Indication: CHRONIC OBSTRUCTIVE PULMONARY DISEASE
     Route: 050
     Dates: start: 2009
  6. VITAMIN D [ERGOCALCIFEROL] [Concomitant]
     Active Substance: ERGOCALCIFEROL
     Indication: PROPHYLAXIS
     Route: 048
     Dates: start: 2014
  7. VITAMIN D [ERGOCALCIFEROL] [Concomitant]
     Active Substance: ERGOCALCIFEROL
     Indication: SUPPLEMENTATION THERAPY
  8. MORPHIN [MORPHINE SULFATE] [Concomitant]
     Indication: PAIN IN EXTREMITY
     Route: 048
     Dates: start: 201902
  9. AFLIBERCEPT [Concomitant]
     Active Substance: AFLIBERCEPT
     Indication: MACULAR DEGENERATION
     Dosage: 2 MG/OPT/ A MONTH
     Route: 050
     Dates: start: 2017
  10. ASG-22CE [Suspect]
     Active Substance: ENFORTUMAB VEDOTIN
     Indication: TRANSITIONAL CELL CARCINOMA
     Dosage: 109 MG, CYCLIC (DAY 1,8 AND 15 OF EVERY CYCLE) (3 CONSECUTIVE WEEKS + 1 WEEK OFF)
     Route: 042
     Dates: start: 20190305, end: 20190404
  11. RESTASIS [Concomitant]
     Active Substance: CYCLOSPORINE
     Indication: DRY EYE
     Dosage: 0.05% DROP, TWICE DAILY
     Route: 065
     Dates: start: 2017
  12. RESTASIS [Concomitant]
     Active Substance: CYCLOSPORINE
     Indication: MACULAR DEGENERATION
  13. MORPHIN [MORPHINE SULFATE] [Concomitant]
     Indication: PERIPHERAL SWELLING
  14. METONIA [Concomitant]
     Active Substance: METOCLOPRAMIDE
     Indication: NAUSEA
     Dosage: UNK UNK, AS NEEDED
     Route: 048
     Dates: start: 20190306
  15. ASPIRIN [ACETYLSALICYLIC ACID] [Concomitant]
     Active Substance: ASPIRIN
     Indication: STRESS CARDIOMYOPATHY
     Route: 048
     Dates: start: 2009
  16. ARISTOCORT [TRIAMCINOLONE ACETONIDE] [Concomitant]
     Active Substance: TRIAMCINOLONE ACETONIDE
     Indication: RASH
     Dosage: 0.1 %, AS NEEDED
     Route: 061
     Dates: start: 201808
  17. DEXILANT [Concomitant]
     Active Substance: DEXLANSOPRAZOLE
     Indication: GASTROOESOPHAGEAL REFLUX DISEASE
     Route: 048
     Dates: start: 2019
  18. ATIVAN [Concomitant]
     Active Substance: LORAZEPAM
     Indication: ANXIETY
     Route: 048
     Dates: start: 1999
  19. ENSURE [NUTRIENTS NOS] [Concomitant]
     Indication: DYSGEUSIA
     Dosage: UNK UNK, AS NEEDED
     Route: 048
     Dates: start: 20190314
  20. ROSUVASTATIN. [Concomitant]
     Active Substance: ROSUVASTATIN
     Indication: BLOOD CHOLESTEROL INCREASED
     Route: 048
     Dates: start: 2009

REACTIONS (2)
  - Acute kidney injury [Recovered/Resolved]
  - Pulmonary embolism [Recovered/Resolved]

NARRATIVE: CASE EVENT DATE: 20190411
